FAERS Safety Report 6907334-7 (Version None)
Quarter: 2010Q3

REPORT INFORMATION
  Report Type: 
  Country: None (occurrence: None)
  Receive Date: 20100802
  Receipt Date: 20100719
  Transmission Date: 20110219
  Serious: Yes (Other)
  Sender: FDA-Public Use
  Company Number: 644373

PATIENT
  Age: 71 Year
  Sex: Female

DRUGS (3)
  1. CEFTRIAXONE [Suspect]
     Indication: PRODUCT USED FOR UNKNOWN INDICATION
     Dosage: 2 GRAM, 1 EVERY 24 HOUR(S) INTRAVENOUS
     Route: 042
  2. HYDROCHLOROTHIAZIDE [Concomitant]
  3. RAMIPRIL [Concomitant]

REACTIONS (4)
  - CONJUNCTIVITIS VIRAL [None]
  - FATIGUE [None]
  - NEUTROPENIA [None]
  - PYREXIA [None]
